FAERS Safety Report 8052438-1 (Version None)
Quarter: 2012Q1

REPORT INFORMATION
  Report Type: 
  Country: None (occurrence: None)
  Receive Date: 20120118
  Receipt Date: 20120113
  Transmission Date: 20120608
  Serious: Yes (Other)
  Sender: FDA-Public Use
  Company Number: DE-PFIZER INC-2012011638

PATIENT
  Age: 91 Year
  Sex: Female

DRUGS (1)
  1. NORVASC [Suspect]
     Indication: BLOOD PRESSURE INCREASED
     Dosage: 2.5 MG, 3-4 TIMES PER DAY

REACTIONS (2)
  - MOOD ALTERED [None]
  - DEMENTIA [None]
